FAERS Safety Report 9999285 (Version 3)
Quarter: 2014Q2

REPORT INFORMATION
  Report Type: Report from Study
  Country: JP (occurrence: JP)
  Receive Date: 20140312
  Receipt Date: 20140603
  Transmission Date: 20141212
  Serious: Yes (Death, Life-Threatening, Other)
  Sender: FDA-Public Use
  Company Number: JP-MPIJNJ-2014JNJ000620

PATIENT
  Sex: 0

DRUGS (3)
  1. VELCADE [Suspect]
     Indication: PLASMA CELL MYELOMA
     Dosage: 0.7 MG/M2, UNK
     Route: 058
     Dates: start: 20130723, end: 20130723
  2. VELCADE [Suspect]
     Dosage: 1.3 MG/M2, UNK
     Route: 058
     Dates: start: 20130813, end: 20130813
  3. DEXAMETHASONE [Concomitant]
     Indication: PLASMA CELL MYELOMA

REACTIONS (5)
  - Sepsis [Recovering/Resolving]
  - Duodenal perforation [Fatal]
  - Plasma cell myeloma [Fatal]
  - Atrial fibrillation [Not Recovered/Not Resolved]
  - Depressed level of consciousness [Recovered/Resolved]
